FAERS Safety Report 6518108-3 (Version None)
Quarter: 2009Q4

REPORT INFORMATION
  Report Type: 
  Country: None (occurrence: None)
  Receive Date: 20091224
  Receipt Date: 20091216
  Transmission Date: 20100525
  Serious: Yes (Hospitalization, Other)
  Sender: FDA-Public Use
  Company Number: US-ELI_LILLY_AND_COMPANY-US200911002532

PATIENT
  Sex: Female

DRUGS (6)
  1. FORTEO [Suspect]
     Indication: OSTEOPOROSIS
     Dosage: 20 UG, DAILY (1/D)
     Dates: start: 20091001, end: 20090101
  2. FORTEO [Suspect]
     Dosage: 20 UG, DAILY (1/D)
     Dates: start: 20091101, end: 20090101
  3. LIPITOR [Concomitant]
     Dosage: UNK, DAILY (1/D)
  4. LEVOXYL [Concomitant]
     Dosage: UNK, DAILY (1/D)
  5. SINGULAIR [Concomitant]
     Indication: HYPERSENSITIVITY
     Dosage: UNK, DAILY (1/D)
  6. XANAX [Concomitant]
     Indication: SLEEP DISORDER
     Dosage: UNK, OTHER

REACTIONS (8)
  - ARTHRALGIA [None]
  - ARTHROPATHY [None]
  - FALL [None]
  - GAIT DISTURBANCE [None]
  - JOINT LOCK [None]
  - LOSS OF CONSCIOUSNESS [None]
  - LOWER LIMB FRACTURE [None]
  - MUSCULOSKELETAL DISORDER [None]
